FAERS Safety Report 23542640 (Version 1)
Quarter: 2024Q1

REPORT INFORMATION
  Report Type: Spontaneous
  Country: US (occurrence: US)
  Receive Date: 20240220
  Receipt Date: 20240220
  Transmission Date: 20240410
  Serious: Yes (Life-Threatening, Hospitalization, Other)
  Sender: FDA-Public Use
  Company Number: US-ALKEM LABORATORIES LIMITED-US-ALKEM-2023-07899

PATIENT
  Age: 10 Year
  Sex: Female

DRUGS (4)
  1. DENOSUMAB [Suspect]
     Active Substance: DENOSUMAB
     Indication: Bone giant cell tumour benign
     Dosage: 70 MILLIGRAM/SQ. METER (70 MG/M2 /DOSE, WEEKLY X 5 THEN MONTHLY X 5)
     Route: 065
  2. DENOSUMAB [Suspect]
     Active Substance: DENOSUMAB
     Dosage: UNK (REINITIATED DOSE) (WEEKLY X 6 THEN MONTHLY X 9)
     Route: 065
  3. IMATINIB MESYLATE [Suspect]
     Active Substance: IMATINIB MESYLATE
     Indication: Bone giant cell tumour benign
     Dosage: UNK (340 MG/M2/DAY ROUNDED UP TO 400 MG)
     Route: 065
  4. TRIAMCINOLONE ACETONIDE [Suspect]
     Active Substance: TRIAMCINOLONE ACETONIDE
     Indication: Bone giant cell tumour benign
     Dosage: KENALOG, 80 TO 100 MG/TREATMENT WITH 4 TREATMENTS OVER 2 MONTHS
     Route: 026

REACTIONS (12)
  - Toxicity to various agents [Unknown]
  - Renal impairment [Unknown]
  - Disease recurrence [Unknown]
  - Metabolic disorder [Unknown]
  - Vomiting [Unknown]
  - Weight decreased [Unknown]
  - Gait disturbance [Unknown]
  - Hypercalcaemia [Unknown]
  - Nausea [Unknown]
  - Neoplasm progression [Unknown]
  - Off label use [Unknown]
  - Incorrect product administration duration [Unknown]
